FAERS Safety Report 10220644 (Version 1)
Quarter: 2014Q2

REPORT INFORMATION
  Report Type: Spontaneous
  Country: US (occurrence: None)
  Receive Date: 20140605
  Receipt Date: 20140605
  Transmission Date: 20141212
  Serious: Yes (Life-Threatening, Disabling, Other)
  Sender: FDA-Public Use
  Company Number: None

PATIENT
  Age: 63 Year
  Sex: Male
  Weight: 131.54 kg

DRUGS (1)
  1. VENLAFAXINE HCL ER CAP 75MG TEVA [Suspect]
     Indication: MAJOR DEPRESSION
     Dosage: 1 CAPSULE, 3 CAPS IN MORNING, ORALLY
     Route: 048
     Dates: start: 20140503, end: 20140603

REACTIONS (5)
  - Drug withdrawal syndrome [None]
  - Judgement impaired [None]
  - Mental impairment [None]
  - Negative thoughts [None]
  - Product quality issue [None]
